FAERS Safety Report 15172305 (Version 1)
Quarter: 2018Q3

REPORT INFORMATION
  Report Type: Spontaneous
  Country: US (occurrence: US)
  Receive Date: 20180622
  Receipt Date: 20180622
  Transmission Date: 20181010
  Serious: No
  Sender: FDA-Public Use
  Company Number: None

PATIENT
  Age: 77 Year
  Sex: Female

DRUGS (11)
  1. PROCTOZONE [Concomitant]
     Active Substance: HYDROCORTISONE
  2. VITAMIN C [Concomitant]
     Active Substance: ASCORBIC ACID
  3. MONTELUKAST [Concomitant]
     Active Substance: MONTELUKAST SODIUM
  4. URSO [Concomitant]
     Active Substance: URSODIOL
  5. METOPROL SUCCINATE [Concomitant]
     Active Substance: METOPROLOL SUCCINATE
  6. PROTONIX [Concomitant]
     Active Substance: PANTOPRAZOLE SODIUM
  7. MINOXIDIL. [Concomitant]
     Active Substance: MINOXIDIL
  8. OCALIVA [Suspect]
     Active Substance: OBETICHOLIC ACID
     Indication: PRIMARY BILIARY CHOLANGITIS
     Route: 048
     Dates: start: 20180420, end: 201805
  9. LOSARTAN. [Concomitant]
     Active Substance: LOSARTAN
  10. HYDROCHLOROT [Concomitant]
     Active Substance: HYDROCHLOROTHIAZIDE
  11. NIFEDPINE [Concomitant]

REACTIONS (1)
  - Unevaluable event [None]

NARRATIVE: CASE EVENT DATE: 201805
